FAERS Safety Report 24905611 (Version 2)
Quarter: 2025Q3

REPORT INFORMATION
  Report Type: Spontaneous
  Country: US (occurrence: US)
  Receive Date: 20250130
  Receipt Date: 20250810
  Transmission Date: 20251021
  Serious: No
  Sender: ALEXION PHARMACEUTICALS
  Company Number: US-AstraZeneca-CH-00792217A

PATIENT
  Sex: Male

DRUGS (1)
  1. ULTOMIRIS [Suspect]
     Active Substance: RAVULIZUMAB-CWVZ
     Route: 065

REACTIONS (7)
  - Fatigue [Not Recovered/Not Resolved]
  - Speech disorder [Unknown]
  - Dysphagia [Not Recovered/Not Resolved]
  - Dyspnoea [Unknown]
  - Nasopharyngitis [Unknown]
  - Eyelid ptosis [Not Recovered/Not Resolved]
  - Condition aggravated [Not Recovered/Not Resolved]
